FAERS Safety Report 6888838-2 (Version None)
Quarter: 2010Q3

REPORT INFORMATION
  Report Type: 
  Country: None (occurrence: None)
  Receive Date: 20100730
  Receipt Date: 20071107
  Transmission Date: 20110219
  Serious: No
  Sender: FDA-Public Use
  Company Number: US-PFIZER INC-2007094219

PATIENT
  Sex: Female
  Weight: 83.91 kg

DRUGS (12)
  1. LIPITOR [Suspect]
     Indication: BLOOD CHOLESTEROL INCREASED
  2. LIPITOR [Suspect]
     Indication: BLOOD TRIGLYCERIDES INCREASED
  3. LORAZEPAM [Concomitant]
  4. TIAZAC [Concomitant]
  5. SYNTHROID [Concomitant]
  6. PREVACID [Concomitant]
  7. NASONEX [Concomitant]
  8. CENTRUM SILVER [Concomitant]
  9. ACETYLSALICYLIC ACID SRT [Concomitant]
  10. ACETAMINOPHEN [Concomitant]
  11. GARLIC [Concomitant]
  12. LOVAZA [Concomitant]

REACTIONS (2)
  - HELICOBACTER INFECTION [None]
  - MYALGIA [None]
